FAERS Safety Report 20806960 (Version 2)
Quarter: 2022Q4

REPORT INFORMATION
  Report Type: Spontaneous
  Country: US (occurrence: US)
  Receive Date: 20220510
  Receipt Date: 20221107
  Transmission Date: 20230112
  Serious: Yes (Other)
  Sender: FDA-Public Use
  Company Number: US-BRISTOL-MYERS SQUIBB COMPANY-2022-029987

PATIENT
  Age: 63 Year
  Sex: Male
  Weight: 83 kg

DRUGS (2)
  1. IPILIMUMAB [Suspect]
     Active Substance: IPILIMUMAB
     Indication: Acral lentiginous melanoma
     Route: 065
     Dates: start: 20210917
  2. NIVOLUMAB [Suspect]
     Active Substance: NIVOLUMAB
     Indication: Acral lentiginous melanoma
     Route: 065
     Dates: start: 20210917

REACTIONS (9)
  - Dizziness [Recovered/Resolved]
  - Diarrhoea [Recovered/Resolved]
  - Pruritus [Unknown]
  - Haematochezia [Not Recovered/Not Resolved]
  - Anaemia [Unknown]
  - Hypothyroidism [Unknown]
  - Dry mouth [Unknown]
  - Muscle tightness [Unknown]
  - Malignant neoplasm progression [Unknown]

NARRATIVE: CASE EVENT DATE: 20211007
